FAERS Safety Report 4571133-4 (Version None)
Quarter: 2005Q1

REPORT INFORMATION
  Report Type: 
  Country: None (occurrence: None)
  Receive Date: 20050202
  Receipt Date: 20050126
  Transmission Date: 20050727
  Serious: Yes (Other)
  Sender: FDA-Public Use
  Company Number: 2005015591

PATIENT
  Age: 59 Year
  Sex: Female
  Weight: 57 kg

DRUGS (11)
  1. SULPERAZON (SULBACTAM, CEFOPERAZONE) [Suspect]
     Indication: ILL-DEFINED DISORDER
     Dosage: (1 D), INTRAVENOUS
     Route: 042
     Dates: end: 20050113
  2. FUROSEMIDE (FUROSEMIDE) [Concomitant]
  3. VOGLIBOSE (VOGLIBOSE) [Concomitant]
  4. MENATETRENONE (MENATETRENONE) [Concomitant]
  5. TULOBUTEROL HYDROCHLORIDE (TULOBUTEROL HYDROCHLORIDE) [Concomitant]
  6. OMEPRAZOLE [Concomitant]
  7. URSODEOXYCHOLIC ACID (UROSDEOXYCHOLIC ACID) [Concomitant]
  8. GLIMEPIRIDE [Concomitant]
  9. SPIRONOLACTONE [Concomitant]
  10. CISPLATIN [Concomitant]
  11. LIVACT (AMINO ACIDS NOS) [Concomitant]

REACTIONS (1)
  - ANAPHYLACTIC SHOCK [None]
